FAERS Safety Report 9285477 (Version 1)
Quarter: 2013Q2

REPORT INFORMATION
  Report Type: Spontaneous
  Country: US (occurrence: None)
  Receive Date: 20130510
  Receipt Date: 20130510
  Transmission Date: 20140414
  Serious: Yes (Death, Hospitalization)
  Sender: FDA-Public Use
  Company Number: None

PATIENT
  Age: 70 Year
  Sex: Female
  Weight: 68 kg

DRUGS (2)
  1. CARBOPLATIN [Suspect]
     Dates: end: 20111229
  2. PACLITAXEL (TAXOL) [Suspect]
     Dates: end: 20120112

REACTIONS (15)
  - Hypotension [None]
  - Tachycardia [None]
  - Malaise [None]
  - Asthenia [None]
  - Atrial fibrillation [None]
  - Pancytopenia [None]
  - Clostridium test positive [None]
  - Postoperative wound infection [None]
  - Staphylococcus test positive [None]
  - Abdominal abscess [None]
  - Urine output decreased [None]
  - Vomiting [None]
  - Pleural effusion [None]
  - Enterobacter infection [None]
  - Respiratory disorder [None]
